FAERS Safety Report 4706430-2 (Version None)
Quarter: 2005Q2

REPORT INFORMATION
  Report Type: 
  Country: None (occurrence: None)
  Receive Date: 20050113
  Receipt Date: 20050113
  Transmission Date: 20051028
  Serious: Yes (Other)
  Sender: FDA-Public Use
  Company Number: None

PATIENT
  Age: 53 Year
  Sex: Male
  Weight: 97.977 kg

DRUGS (1)
  1. MIXED AMPHETAMINE SALT  EON [Suspect]
     Indication: ATTENTION DEFICIT/HYPERACTIVITY DISORDER
     Dosage: 10MG PO QD
     Route: 048
     Dates: start: 20021030

REACTIONS (1)
  - DRUG EFFECT DECREASED [None]
